FAERS Safety Report 19527385 (Version 1)
Quarter: 2021Q3

REPORT INFORMATION
  Report Type: Report from Study
  Country: US (occurrence: US)
  Receive Date: 20210713
  Receipt Date: 20210713
  Transmission Date: 20211014
  Serious: No
  Sender: FDA-Public Use
  Company Number: US-INCYTE CORPORATION-2021IN004978

PATIENT

DRUGS (1)
  1. JAKAFI [Suspect]
     Active Substance: RUXOLITINIB
     Indication: POLYCYTHAEMIA VERA
     Dosage: 20MG QAM, 20MG QPM (MON,WED,FRI), 10MG QAM, 10MG QPM (TUE,THU,SAT)
     Route: 048
     Dates: start: 20170801

REACTIONS (1)
  - Asthenia [Unknown]
